FAERS Safety Report 9689734 (Version 5)
Quarter: 2014Q1

REPORT INFORMATION
  Report Type: Spontaneous
  Country: DE (occurrence: DE)
  Receive Date: 20131115
  Receipt Date: 20140128
  Transmission Date: 20141002
  Serious: Yes (Life-Threatening, Hospitalization, Other)
  Sender: FDA-Public Use
  Company Number: DE-JNJFOC-20131107578

PATIENT
  Age: 65 Year
  Sex: Male

DRUGS (4)
  1. XARELTO [Suspect]
     Indication: CEREBROVASCULAR ACCIDENT PROPHYLAXIS
     Route: 048
     Dates: end: 20131104
  2. XARELTO [Suspect]
     Indication: ATRIAL FIBRILLATION
     Route: 048
     Dates: end: 20131104
  3. JANUVIA [Concomitant]
     Route: 065
  4. NEBIVOLOL [Concomitant]
     Route: 065

REACTIONS (8)
  - Bursitis infective [Recovering/Resolving]
  - Renal failure [Recovering/Resolving]
  - Sepsis [Recovering/Resolving]
  - Hyperkalaemia [Unknown]
  - Haemorrhagic diathesis [Unknown]
  - Hepatic function abnormal [Unknown]
  - Haemarthrosis [Unknown]
  - Haemorrhage [Unknown]
